FAERS Safety Report 15439269 (Version 1)
Quarter: 2018Q3

REPORT INFORMATION
  Report Type: Report from Study
  Country: US (occurrence: US)
  Receive Date: 20180928
  Receipt Date: 20180928
  Transmission Date: 20181010
  Serious: Yes (Other)
  Sender: FDA-Public Use
  Company Number: US-GILEAD-2018-0365421

PATIENT
  Age: 72 Year
  Sex: Female

DRUGS (2)
  1. AMBRISENTAN [Suspect]
     Active Substance: AMBRISENTAN
     Indication: PULMONARY HYPERTENSION
     Dosage: 10 MG, QD
     Route: 065
     Dates: start: 20140930
  2. XARELTO [Concomitant]
     Active Substance: RIVAROXABAN

REACTIONS (2)
  - Viral infection [Recovered/Resolved]
  - Renal neoplasm [Unknown]
